FAERS Safety Report 8243717-3 (Version None)
Quarter: 2012Q1

REPORT INFORMATION
  Report Type: 
  Country: None (occurrence: None)
  Receive Date: 20120329
  Receipt Date: 20110405
  Transmission Date: 20120608
  Serious: No
  Sender: FDA-Public Use
  Company Number: US-MYLANLABS-2011S1007035

PATIENT
  Sex: Male
  Weight: 95.26 kg

DRUGS (5)
  1. EMSAM [Suspect]
     Indication: DEPRESSION
     Dosage: CHANGES PATCHES Q.D.
     Route: 062
  2. LIPITOR [Concomitant]
     Indication: BLOOD CHOLESTEROL INCREASED
  3. LAMICTAL [Concomitant]
     Indication: MOOD SWINGS
  4. ASPIRIN [Concomitant]
  5. TOPROL-XL [Concomitant]
     Indication: HYPERTENSION
     Dates: start: 20100901

REACTIONS (2)
  - APPLICATION SITE ERYTHEMA [None]
  - APPLICATION SITE RASH [None]
